FAERS Safety Report 5963443-0 (Version None)
Quarter: 2008Q4

REPORT INFORMATION
  Report Type: 
  Country: None (occurrence: None)
  Receive Date: 20081120
  Receipt Date: 20081110
  Transmission Date: 20090506
  Serious: Yes (Other)
  Sender: FDA-Public Use
  Company Number: 2008SP021177

PATIENT
  Age: 56 Year
  Sex: Female

DRUGS (3)
  1. PEG-INTRON [Suspect]
     Indication: HEPATITIS C
  2. PEGASYS [Suspect]
     Indication: HEPATITIS C
     Dates: start: 20080814, end: 20081001
  3. COPEGUS [Suspect]
     Indication: HEPATITIS C
     Dates: start: 20080814, end: 20081001

REACTIONS (1)
  - WHITE BLOOD CELL COUNT DECREASED [None]
